FAERS Safety Report 11289035 (Version 1)
Quarter: 2015Q3

REPORT INFORMATION
  Report Type: Spontaneous
  Country: US (occurrence: US)
  Receive Date: 20150721
  Receipt Date: 20150721
  Transmission Date: 20151125
  Serious: No
  Sender: FDA-Public Use
  Company Number: US-UNITED THERAPEUTICS-UNT-2015-000598

PATIENT
  Age: 47 Year
  Sex: Female
  Weight: 61.22 kg

DRUGS (3)
  1. REMODULIN [Suspect]
     Active Substance: TREPROSTINIL
     Indication: PULMONARY ARTERIAL HYPERTENSION
     Dosage: 0.108 ?G/KG/MIN, CONTINUING
     Route: 041
     Dates: start: 20100110
  2. LETAIRIS [Concomitant]
     Active Substance: AMBRISENTAN
     Indication: PRODUCT USED FOR UNKNOWN INDICATION
  3. COUMADIN [Concomitant]
     Active Substance: WARFARIN SODIUM
     Indication: PRODUCT USED FOR UNKNOWN INDICATION

REACTIONS (8)
  - Anxiety [Unknown]
  - Device dislocation [Unknown]
  - Device leakage [Unknown]
  - Drug dose omission [Unknown]
  - Dyspnoea [Unknown]
  - Dysgeusia [Not Recovered/Not Resolved]
  - Headache [Not Recovered/Not Resolved]
  - Glossodynia [Unknown]

NARRATIVE: CASE EVENT DATE: 20150117
